FAERS Safety Report 11889017 (Version 1)
Quarter: 2016Q1

REPORT INFORMATION
  Report Type: Spontaneous
  Country: US (occurrence: None)
  Receive Date: 20160104
  Receipt Date: 20160104
  Transmission Date: 20160526
  Serious: Yes (Hospitalization)
  Sender: FDA-Public Use
  Company Number: None

PATIENT
  Age: 59 Year
  Sex: Male
  Weight: 76.1 kg

DRUGS (1)
  1. HEPARIN [Suspect]
     Active Substance: HEPARIN SODIUM
     Indication: DEEP VEIN THROMBOSIS
     Dosage: 1375 UNITS  PER HOUR  IV
     Route: 042
     Dates: start: 20150928, end: 20151004

REACTIONS (1)
  - Intra-abdominal haemorrhage [None]

NARRATIVE: CASE EVENT DATE: 20151004
